FAERS Safety Report 7113808-9 (Version None)
Quarter: 2010Q4

REPORT INFORMATION
  Report Type: 
  Country: None (occurrence: None)
  Receive Date: 20101119
  Receipt Date: 20101112
  Transmission Date: 20110411
  Serious: Yes (Hospitalization)
  Sender: FDA-Public Use
  Company Number: US-CEPHALON-2010005417

PATIENT
  Sex: Male
  Weight: 33 kg

DRUGS (2)
  1. TRISENOX [Suspect]
     Indication: ACUTE PROMYELOCYTIC LEUKAEMIA
     Route: 042
     Dates: start: 20100828, end: 20101028
  2. DEXAMETHASONE [Concomitant]

REACTIONS (6)
  - ACUTE PROMYELOCYTIC LEUKAEMIA [None]
  - CANDIDIASIS [None]
  - DYSPNOEA [None]
  - HAEMOPTYSIS [None]
  - MYCOBACTERIAL INFECTION [None]
  - WEIGHT INCREASED [None]
